FAERS Safety Report 4590011-8 (Version None)
Quarter: 2005Q1

REPORT INFORMATION
  Report Type: 
  Country: None (occurrence: None)
  Receive Date: 20050217
  Receipt Date: 20050202
  Transmission Date: 20050727
  Serious: No
  Sender: FDA-Public Use
  Company Number: 2005GB00232

PATIENT
  Age: 58 Year
  Sex: Male
  Weight: 100.6 kg

DRUGS (8)
  1. QUETIAPINE FUMARATE [Suspect]
     Dosage: 100 MG QD PO
     Route: 048
     Dates: end: 20041221
  2. QUETIAPINE FUMARATE [Suspect]
     Dosage: 200 MG QD PO
     Route: 048
     Dates: start: 20041222
  3. LORAZEPAM [Concomitant]
  4. FOLIC ACID [Concomitant]
  5. IBUPROFEN [Concomitant]
  6. HALOPERIDOL [Concomitant]
  7. CARBAMAZEPINE [Concomitant]
  8. FLUCLOXACILLIN [Concomitant]

REACTIONS (4)
  - CONVULSION [None]
  - FACE INJURY [None]
  - FALL [None]
  - INJURY [None]
